FAERS Safety Report 8457686-4 (Version None)
Quarter: 2012Q2

REPORT INFORMATION
  Report Type: 
  Country: None (occurrence: None)
  Receive Date: 20120618
  Receipt Date: 20120618
  Transmission Date: 20120825
  Serious: Yes (Other)
  Sender: FDA-Public Use
  Company Number: None

PATIENT
  Age: 30 Year
  Sex: Female
  Weight: 56.6996 kg

DRUGS (2)
  1. CYMBALTA [Suspect]
     Indication: DEPRESSION
     Dosage: 60 MG DAILY BUCCAL
     Route: 002
     Dates: start: 20111128, end: 20120525
  2. CYMBALTA [Suspect]
     Indication: ANXIETY
     Dosage: 60 MG DAILY BUCCAL
     Route: 002
     Dates: start: 20111128, end: 20120525

REACTIONS (10)
  - HYPERHIDROSIS [None]
  - NAUSEA [None]
  - VOMITING [None]
  - HOT FLUSH [None]
  - DRUG WITHDRAWAL SYNDROME [None]
  - BEDRIDDEN [None]
  - PARAESTHESIA [None]
  - NIGHT SWEATS [None]
  - ACTIVITIES OF DAILY LIVING IMPAIRED [None]
  - IMPAIRED WORK ABILITY [None]
